FAERS Safety Report 7626831-2 (Version None)
Quarter: 2011Q3

REPORT INFORMATION
  Report Type: 
  Country: None (occurrence: None)
  Receive Date: 20110721
  Receipt Date: 20110715
  Transmission Date: 20111222
  Serious: Yes (Hospitalization)
  Sender: FDA-Public Use
  Company Number: PT-B.I. PHARMACEUTICALS,INC./RIDGEFIELD-2011-DE-03978PO

PATIENT
  Sex: Male

DRUGS (6)
  1. TELMISARTAN [Suspect]
     Indication: HYPERTENSION
     Route: 048
     Dates: start: 20110623
  2. THIAMINE [Concomitant]
     Route: 048
     Dates: start: 20110623
  3. PRADAXA [Suspect]
     Indication: PROPHYLAXIS
     Dosage: 220 MG
     Route: 048
     Dates: start: 20110623, end: 20110701
  4. TIAPRIDE [Concomitant]
     Route: 048
     Dates: start: 20110623
  5. DIGOXIN [Concomitant]
     Route: 048
     Dates: start: 20110623
  6. PRADAXA [Suspect]
     Indication: ATRIAL FIBRILLATION

REACTIONS (2)
  - OFF LABEL USE [None]
  - HAEMORRHAGIC TRANSFORMATION STROKE [None]
